FAERS Safety Report 23328870 (Version 1)
Quarter: 2023Q4

REPORT INFORMATION
  Report Type: Spontaneous
  Country: IT (occurrence: IT)
  Receive Date: 20231222
  Receipt Date: 20231222
  Transmission Date: 20240109
  Serious: Yes (Other)
  Sender: FDA-Public Use
  Company Number: IT-MINISAL02-398106

PATIENT
  Age: 36 Year
  Sex: Female

DRUGS (4)
  1. ENALAPRIL [Suspect]
     Active Substance: ENALAPRIL
     Indication: Hypertension
     Dosage: UNK
     Route: 048
  2. ENALAPRIL [Suspect]
     Active Substance: ENALAPRIL
     Dosage: UNK
     Route: 048
  3. LERCANIDIPINE [Suspect]
     Active Substance: LERCANIDIPINE
     Indication: Hypertension
     Dosage: UNK
     Route: 048
  4. LERCANIDIPINE [Suspect]
     Active Substance: LERCANIDIPINE
     Dosage: UNK
     Route: 048

REACTIONS (7)
  - Hypertension [Unknown]
  - Tinnitus [Unknown]
  - Erythema [Unknown]
  - Headache [Unknown]
  - Malaise [Unknown]
  - Tachycardia [Unknown]
  - Medication error [Unknown]

NARRATIVE: CASE EVENT DATE: 20150220
